FAERS Safety Report 10792477 (Version 1)
Quarter: 2015Q1

REPORT INFORMATION
  Report Type: Spontaneous
  Country: HR (occurrence: HR)
  Receive Date: 20150213
  Receipt Date: 20150213
  Transmission Date: 20150721
  Serious: Yes (Other)
  Sender: FDA-Public Use
  Company Number: HR-BAYER-2015-020250

PATIENT
  Age: 38 Year
  Sex: Female

DRUGS (3)
  1. YAZ [Suspect]
     Active Substance: DROSPIRENONE\ETHINYL ESTRADIOL
     Indication: CONTRACEPTION
     Dosage: 1 DF, QD
     Route: 048
     Dates: start: 20140101, end: 20150115
  2. AZITHROMYCIN [Concomitant]
     Active Substance: AZITHROMYCIN ANHYDROUS
     Indication: RESPIRATORY TRACT INFECTION
     Dosage: 500 MG, QD
     Route: 048
     Dates: start: 20150114
  3. FOSTER [Concomitant]
     Active Substance: BECLOMETHASONE\FORMOTEROL
     Indication: ASTHMA
     Dosage: 1 DF, BID
     Route: 048
     Dates: start: 20140703

REACTIONS (4)
  - Venous thrombosis [Recovered/Resolved with Sequelae]
  - Pulmonary embolism [Recovered/Resolved with Sequelae]
  - Dyspnoea [Recovered/Resolved with Sequelae]
  - Tachycardia [Recovered/Resolved with Sequelae]

NARRATIVE: CASE EVENT DATE: 20150114
